FAERS Safety Report 7721789-X (Version None)
Quarter: 2011Q3

REPORT INFORMATION
  Report Type: 
  Country: None (occurrence: None)
  Receive Date: 20110831
  Receipt Date: 20110826
  Transmission Date: 20111222
  Serious: Yes (Life-Threatening, Hospitalization, Disabling)
  Sender: FDA-Public Use
  Company Number: NZ-B.I. PHARMACEUTICALS,INC./RIDGEFIELD-2011-AU-00774AU

PATIENT
  Sex: Female
  Weight: 67 kg

DRUGS (4)
  1. NICOTINIC ACID [Concomitant]
     Dosage: 1.5 G
  2. INHIBACE [Concomitant]
     Dosage: 5 MG
  3. PRADAXA [Suspect]
     Indication: ATRIAL FIBRILLATION
     Dosage: 220 MG
     Dates: start: 20110702, end: 20110707
  4. BEZALIP RETARD [Concomitant]
     Dosage: 400 MG

REACTIONS (3)
  - SUBDURAL EMPYEMA [None]
  - SUBDURAL HAEMORRHAGE [None]
  - WOUND INFECTION [None]
